FAERS Safety Report 23662218 (Version 3)
Quarter: 2024Q2

REPORT INFORMATION
  Report Type: Report from Study
  Country: JP (occurrence: None)
  Receive Date: 20240322
  Receipt Date: 20240418
  Transmission Date: 20240716
  Serious: Yes (Other)
  Sender: FDA-Public Use
  Company Number: 2024A066768

PATIENT
  Age: 4747 Day
  Sex: Male

DRUGS (1)
  1. KOSELUGO [Suspect]
     Active Substance: SELUMETINIB
     Indication: Neurofibroma
     Dosage: DOSE UNKNOWN
     Route: 048
     Dates: start: 20230131

REACTIONS (4)
  - Dermatitis contact [Recovering/Resolving]
  - Eczema [Recovering/Resolving]
  - Cheilitis [Recovering/Resolving]
  - Dry skin [Recovering/Resolving]

NARRATIVE: CASE EVENT DATE: 20230131
